FAERS Safety Report 16575769 (Version 1)
Quarter: 2019Q3

REPORT INFORMATION
  Report Type: Report from Study
  Country: JP (occurrence: JP)
  Receive Date: 20190716
  Receipt Date: 20190716
  Transmission Date: 20191004
  Serious: Yes (Death, Other)
  Sender: FDA-Public Use
  Company Number: JP-INGENUS PHARMACEUTICALS, LLC-2019INF000218

PATIENT

DRUGS (2)
  1. DOCETAXEL. [Suspect]
     Active Substance: DOCETAXEL
     Indication: NON-SMALL CELL LUNG CANCER RECURRENT
     Dosage: 60 MILLIGRAM/SQ. METER, ON DAY 1 OF A 21-DAY CYCLE
     Route: 042
  2. ERLOTINIB [Suspect]
     Active Substance: ERLOTINIB
     Indication: NON-SMALL CELL LUNG CANCER RECURRENT
     Dosage: 150 MILLIGRAM, QD, DURING THE FASTING STATE OF 1H BEFORE OR 2H AFTER MEALS ON DAYS 2-16 OF A 21-DAY
     Route: 048

REACTIONS (1)
  - Pleural infection [Fatal]
